FAERS Safety Report 8435161-0 (Version None)
Quarter: 2012Q2

REPORT INFORMATION
  Report Type: 
  Country: None (occurrence: None)
  Receive Date: 20120614
  Receipt Date: 20120605
  Transmission Date: 20120825
  Serious: Yes (Other)
  Sender: FDA-Public Use
  Company Number: US-BAYER-2012-055451

PATIENT
  Age: 36 Year
  Sex: Female
  Weight: 77.098 kg

DRUGS (4)
  1. YASMIN [Suspect]
     Indication: MENORRHAGIA
     Dosage: UNK UNK, QD
     Dates: start: 20070205, end: 20070207
  2. DOVONEX [Concomitant]
     Dosage: DAILY
     Route: 061
     Dates: start: 20061104, end: 20070110
  3. OLUX [Concomitant]
     Dosage: DAILY
     Route: 061
     Dates: start: 20061104, end: 20070124
  4. MULTI-VITAMIN [Concomitant]
     Indication: SUPPLEMENTATION THERAPY
     Dosage: 1 PILL ONCE DAILY
     Route: 048

REACTIONS (6)
  - TRANSIENT ISCHAEMIC ATTACK [None]
  - CLUMSINESS [None]
  - SENSATION OF HEAVINESS [None]
  - DIZZINESS [None]
  - HEMIPARESIS [None]
  - PAIN [None]
